FAERS Safety Report 5204162-8 (Version None)
Quarter: 2007Q1

REPORT INFORMATION
  Report Type: 
  Country: None (occurrence: None)
  Receive Date: 20070110
  Receipt Date: 20051220
  Transmission Date: 20070707
  Serious: No
  Sender: FDA-Public Use
  Company Number: US-BRISTOL-MYERS SQUIBB COMPANY-13224381

PATIENT
  Age: 70 Year
  Sex: Female

DRUGS (6)
  1. ABILIFY [Suspect]
     Indication: BIPOLAR DISORDER
     Dosage: THE INITIAL DOSE WAS 10 MG/D, WHICH WAS INCREASED WITHIN THE FIRST MONTH TO 15 MG/D.
     Route: 048
     Dates: start: 20041201, end: 20051201
  2. TEGRETOL [Concomitant]
  3. LITHIUM CARBONATE [Concomitant]
  4. PARNATE [Concomitant]
  5. NEURONTIN [Concomitant]
  6. INSULIN [Concomitant]

REACTIONS (1)
  - TARDIVE DYSKINESIA [None]
